FAERS Safety Report 5760499-5 (Version None)
Quarter: 2008Q2

REPORT INFORMATION
  Report Type: 
  Country: None (occurrence: None)
  Receive Date: 20080602
  Receipt Date: 20080519
  Transmission Date: 20081010
  Serious: Yes (Other)
  Sender: FDA-Public Use
  Company Number: 2008BI005419

PATIENT
  Age: 45 Year
  Sex: Male
  Weight: 63.05 kg

DRUGS (3)
  1. AVONEX [Suspect]
     Indication: MULTIPLE SCLEROSIS
     Dosage: 30 UG; QW
     Dates: start: 20000307, end: 20080216
  2. METROGEL [Concomitant]
  3. CHINESE HERBS [Concomitant]

REACTIONS (11)
  - DYSPEPSIA [None]
  - EPSTEIN-BARR VIRUS TEST POSITIVE [None]
  - FATIGUE [None]
  - FOLLICULITIS [None]
  - GASTROOESOPHAGEAL REFLUX DISEASE [None]
  - HEPATITIS ACUTE [None]
  - HERPES SIMPLEX SEROLOGY POSITIVE [None]
  - INFLAMMATION [None]
  - JOINT INJURY [None]
  - NIGHT SWEATS [None]
  - OSTEOARTHRITIS [None]
